FAERS Safety Report 7773757-X (Version None)
Quarter: 2011Q3

REPORT INFORMATION
  Report Type: 
  Country: None (occurrence: None)
  Receive Date: 20110923
  Receipt Date: 20110919
  Transmission Date: 20111222
  Serious: Yes (Other)
  Sender: FDA-Public Use
  Company Number: US-CEPHALON-US025258

PATIENT
  Age: 24 Year
  Sex: Male

DRUGS (1)
  1. FENTORA [Suspect]
     Indication: HEADACHE
     Route: 002

REACTIONS (5)
  - THINKING ABNORMAL [None]
  - DRUG DIVERSION [None]
  - SOMNOLENCE [None]
  - DYSPNOEA [None]
  - MEDICATION ERROR [None]
